FAERS Safety Report 13665708 (Version 1)
Quarter: 2017Q2

REPORT INFORMATION
  Report Type: Spontaneous
  Country: US (occurrence: US)
  Receive Date: 20170619
  Receipt Date: 20170619
  Transmission Date: 20170830
  Serious: No
  Sender: FDA-Public Use
  Company Number: US-009507513-1706USA000974

PATIENT
  Sex: Male

DRUGS (1)
  1. PREGNYL [Suspect]
     Active Substance: CHORIOGONADOTROPIN ALFA
     Indication: ERECTILE DYSFUNCTION
     Dosage: 150 USP UNITS EVERY OTHER DAY, QOD
     Route: 030

REACTIONS (1)
  - Product use in unapproved indication [Unknown]
